FAERS Safety Report 8060471-9 (Version None)
Quarter: 2012Q1

REPORT INFORMATION
  Report Type: 
  Country: None (occurrence: None)
  Receive Date: 20120120
  Receipt Date: 20120119
  Transmission Date: 20120608
  Serious: Yes (Hospitalization, Other)
  Sender: FDA-Public Use
  Company Number: US-PFIZER INC-2012016361

PATIENT
  Sex: Male

DRUGS (2)
  1. CHANTIX [Suspect]
     Indication: SMOKING CESSATION THERAPY
     Dosage: 0.5 MG, DAILY
     Dates: start: 20110912
  2. CHANTIX [Suspect]
     Dosage: UNK
     Dates: end: 20110929

REACTIONS (2)
  - PANCREATITIS ACUTE [None]
  - ENZYME ABNORMALITY [None]
